FAERS Safety Report 6048964-7 (Version None)
Quarter: 2009Q1

REPORT INFORMATION
  Report Type: 
  Country: None (occurrence: None)
  Receive Date: 20090123
  Receipt Date: 20090116
  Transmission Date: 20090719
  Serious: Yes (Hospitalization, Disabling)
  Sender: FDA-Public Use
  Company Number: A0696647A

PATIENT
  Age: 55 Year
  Sex: Female
  Weight: 81.8 kg

DRUGS (4)
  1. AVANDIA [Suspect]
     Route: 048
     Dates: start: 19990101, end: 20050301
  2. AVANDAMET [Suspect]
     Route: 065
  3. GLUCOTROL [Concomitant]
     Dates: start: 20020101, end: 20050101
  4. LIPITOR [Concomitant]

REACTIONS (6)
  - CARDIAC FAILURE CONGESTIVE [None]
  - CARDIAC VALVE DISEASE [None]
  - CARDIOMYOPATHY [None]
  - HYPERTENSION [None]
  - PULMONARY OEDEMA [None]
  - RENAL CANCER [None]
